FAERS Safety Report 6780899-4 (Version None)
Quarter: 2010Q2

REPORT INFORMATION
  Report Type: 
  Country: None (occurrence: None)
  Receive Date: 20100621
  Receipt Date: 20100610
  Transmission Date: 20101027
  Serious: Yes (Hospitalization)
  Sender: FDA-Public Use
  Company Number: US-TYCO HEALTHCARE/MALLINCKRODT-T201001413

PATIENT

DRUGS (17)
  1. OCTREOSCAN [Suspect]
     Indication: SOMATOSTATIN RECEPTOR SCAN
     Dosage: 6.4 MCI, SINGLE
     Route: 042
     Dates: start: 20100604, end: 20100604
  2. ZANTAC                             /00550802/ [Concomitant]
     Dosage: 300 MG, QD
     Route: 048
  3. DIOVAN                             /01319601/ [Concomitant]
     Dosage: 80 MG, QD
     Route: 048
  4. CORDARONE [Concomitant]
     Dosage: 200 MG, Q12 HOURS
     Route: 048
  5. APRESOLINE [Concomitant]
     Dosage: 25 MG, Q8 HOURS
     Route: 048
  6. VERAPAMIL [Concomitant]
     Dosage: 360 MG, QD
     Route: 048
  7. ASPIRIN [Concomitant]
     Dosage: 325 MG, QD
     Route: 048
  8. IMDUR [Concomitant]
     Dosage: 30 MG, QD
     Route: 048
  9. PROTONIX [Concomitant]
     Dosage: 40 MG, BID
     Route: 048
  10. MAXZIDE [Concomitant]
     Dosage: 75/50, QD
     Route: 048
  11. INSPRA [Concomitant]
     Dosage: 50 MG, QD
  12. LYRICA [Concomitant]
     Dosage: 75 MG, BID
     Route: 048
  13. DOLOPHINE HCL [Concomitant]
     Dosage: 5 MG, Q 8 HOURS
     Route: 048
  14. LORTAB [Concomitant]
     Dosage: 10 MG 4 HOURS PRN
     Route: 048
  15. ZOCOR [Concomitant]
     Dosage: 40 MG, QD
     Route: 048
  16. COREG [Concomitant]
     Dosage: 25 MG, QD
     Route: 048
  17. MAVIK [Concomitant]
     Dosage: 4 MG, QD
     Route: 048

REACTIONS (1)
  - BLOOD CREATININE INCREASED [None]
